FAERS Safety Report 11328265 (Version 1)
Quarter: 2015Q3

REPORT INFORMATION
  Report Type: Spontaneous
  Country: US (occurrence: US)
  Receive Date: 20150731
  Receipt Date: 20150731
  Transmission Date: 20151125
  Serious: Yes (Hospitalization)
  Sender: FDA-Public Use
  Company Number: US-TAKEDA-2014TEU006525

PATIENT
  Age: 58 Year
  Sex: Male
  Weight: 117 kg

DRUGS (13)
  1. CALCIUM [Concomitant]
     Active Substance: CALCIUM
  2. SIMVASTATIN. [Concomitant]
     Active Substance: SIMVASTATIN
     Indication: HYPERLIPIDAEMIA
     Dosage: 20 MG, QD
     Route: 048
     Dates: start: 2011
  3. INDOCIN [Suspect]
     Active Substance: INDOMETHACIN\INDOMETHACIN SODIUM
     Indication: GOUT
     Dosage: 25 MG, TID
     Route: 048
     Dates: start: 2006, end: 20140123
  4. BICALUTAMIDE. [Suspect]
     Active Substance: BICALUTAMIDE
     Indication: PROSTATE CANCER
     Dosage: 160 MG, QD
     Route: 048
     Dates: start: 20131220, end: 20140123
  5. BICALUTAMIDE. [Suspect]
     Active Substance: BICALUTAMIDE
     Dosage: 80 MG, QD
     Route: 048
     Dates: start: 20140321, end: 20140410
  6. HYDROCODONE BITARTRATE AND ACETAMINOPHEN [Concomitant]
     Active Substance: ACETAMINOPHEN\HYDROCODONE BITARTRATE
     Dosage: UNK
     Dates: start: 2011, end: 20140123
  7. LUPRON [Concomitant]
     Active Substance: LEUPROLIDE ACETATE
     Dosage: 30 MG, Q3MONTHS
     Route: 030
     Dates: start: 20120106
  8. BICALUTAMIDE. [Suspect]
     Active Substance: BICALUTAMIDE
     Dosage: 160 MG, QD
     Route: 048
     Dates: start: 20140319, end: 20140320
  9. PROMETHAZINE [Concomitant]
     Active Substance: PROMETHAZINE\PROMETHAZINE HYDROCHLORIDE
  10. XGEVA [Concomitant]
     Active Substance: DENOSUMAB
  11. AMLODIPINE [Concomitant]
     Active Substance: AMLODIPINE BESYLATE
     Indication: NEPHRITIS
     Dosage: 2.5 MG, BID
     Route: 048
     Dates: start: 2011
  12. COLCRYS [Suspect]
     Active Substance: COLCHICINE
     Indication: GOUT
     Dosage: 0.6 MG, QD
     Route: 048
     Dates: start: 2006, end: 20140123
  13. HYDROCHOROTHIAZIDE [Concomitant]
     Active Substance: HYDROCHLOROTHIAZIDE

REACTIONS (1)
  - Gout [Not Recovered/Not Resolved]

NARRATIVE: CASE EVENT DATE: 20140123
